FAERS Safety Report 5094970-9 (Version None)
Quarter: 2006Q3

REPORT INFORMATION
  Report Type: 
  Country: None (occurrence: None)
  Receive Date: 20060901
  Receipt Date: 20060522
  Transmission Date: 20061208
  Serious: Yes (Hospitalization)
  Sender: FDA-Public Use
  Company Number: PHNU2006DE02054

PATIENT
  Age: 85 Year
  Sex: Female
  Weight: 62 kg

DRUGS (11)
  1. EXELON [Suspect]
     Indication: DEMENTIA
     Dosage: 1.5 MG, BID
     Route: 048
     Dates: start: 20060112, end: 20060125
  2. EXELON [Suspect]
     Dosage: 1.5 MG, QD
     Route: 048
     Dates: start: 20051226, end: 20060111
  3. EXELON [Suspect]
     Dosage: 1.5 MG - 0 - 3 MG,DAY
     Dates: start: 20060126, end: 20060129
  4. EXELON [Suspect]
     Dosage: 1.5 MG, BID
     Route: 048
     Dates: start: 20060130, end: 20060130
  5. EXELON [Suspect]
     Dosage: 1.5 MG, QD
     Route: 048
     Dates: start: 20060131, end: 20060512
  6. EXELON [Suspect]
     Dosage: 3 MG, QD
     Route: 048
     Dates: start: 20060520, end: 20060520
  7. LANITOP [Concomitant]
     Dosage: 0.1 MG, QD
     Route: 048
  8. BELOC MITE [Concomitant]
     Dosage: 95 MG, QD
     Route: 048
  9. TORSEMIDE [Concomitant]
     Dosage: 5 MG/DAY
     Route: 065
  10. ISCOVER [Concomitant]
     Dosage: 75 MG, QD
     Route: 048
  11. EUNERPAN [Concomitant]
     Dosage: UNK, UNK
     Route: 065

REACTIONS (7)
  - BLOOD PRESSURE INCREASED [None]
  - DIARRHOEA [None]
  - DIZZINESS [None]
  - DYSPNOEA [None]
  - GASTROINTESTINAL PAIN [None]
  - HYPERTENSION [None]
  - NAUSEA [None]
